FAERS Safety Report 20906137 (Version 1)
Quarter: 2022Q2

REPORT INFORMATION
  Report Type: Spontaneous
  Country: US (occurrence: US)
  Receive Date: 20220602
  Receipt Date: 20220602
  Transmission Date: 20220721
  Serious: No
  Sender: FDA-Public Use
  Company Number: US-COLLEGIUM PHARMACEUTICAL, INC.-2021CGM00716

PATIENT
  Sex: Male

DRUGS (2)
  1. XTAMPZA ER [Suspect]
     Active Substance: OXYCODONE
     Indication: Radiculopathy
     Dosage: 9 MG, 2X/DAY
     Route: 048
  2. GABAPENTIN [Concomitant]
     Active Substance: GABAPENTIN

REACTIONS (2)
  - Drug ineffective [Recovered/Resolved]
  - Product quality issue [Recovered/Resolved]

NARRATIVE: CASE EVENT DATE: 20210101
